FAERS Safety Report 7041022-4 (Version None)
Quarter: 2010Q4

REPORT INFORMATION
  Report Type: 
  Country: None (occurrence: None)
  Receive Date: 20101006
  Receipt Date: 20100930
  Transmission Date: 20110411
  Serious: Yes (Other)
  Sender: FDA-Public Use
  Company Number: 2010SP050608

PATIENT
  Age: 54 Year
  Sex: Male
  Weight: 74 kg

DRUGS (3)
  1. ORMIGREIN (ORMIGREIN 01755201/) [Suspect]
     Indication: MIGRAINE
     Dosage: QD; PO
     Route: 048
     Dates: start: 19950101
  2. PRINZIDE /00977901/ [Concomitant]
  3. NEXIUM [Concomitant]

REACTIONS (1)
  - DRUG DEPENDENCE [None]
